FAERS Safety Report 6193611-7 (Version None)
Quarter: 2009Q2

REPORT INFORMATION
  Report Type: 
  Country: None (occurrence: None)
  Receive Date: 20090514
  Receipt Date: 20090430
  Transmission Date: 20091009
  Serious: Yes (Hospitalization)
  Sender: FDA-Public Use
  Company Number: 2009001336

PATIENT
  Age: 65 Year
  Sex: Male

DRUGS (4)
  1. TARCEVA [Suspect]
     Indication: PANCREATIC CARCINOMA METASTATIC
     Dosage: (150 MG), ORAL
     Route: 048
     Dates: start: 20090311, end: 20090413
  2. TARCEVA [Suspect]
     Indication: PANCREATIC CARCINOMA METASTATIC
     Dosage: (150 MG), ORAL
     Route: 048
     Dates: start: 20090418, end: 20090418
  3. TARCEVA [Suspect]
     Indication: PANCREATIC CARCINOMA METASTATIC
     Dosage: (150 MG), ORAL
     Route: 048
     Dates: start: 20090419
  4. GEMCITABINE [Suspect]
     Dosage: (100 MG/M2)
     Dates: start: 20090310

REACTIONS (20)
  - AGITATION [None]
  - ANAEMIA [None]
  - BLEPHAROSPASM [None]
  - BLOOD BILIRUBIN INCREASED [None]
  - BLOOD CREATININE INCREASED [None]
  - BLOOD UREA INCREASED [None]
  - BLOOD URIC ACID INCREASED [None]
  - CONFUSIONAL STATE [None]
  - DIALYSIS [None]
  - GASTRIC VARICES [None]
  - HEPATIC FUNCTION ABNORMAL [None]
  - HEPATORENAL SYNDROME [None]
  - LIVER FUNCTION TEST ABNORMAL [None]
  - METASTASES TO LIVER [None]
  - NERVOUS SYSTEM DISORDER [None]
  - PSYCHOTIC DISORDER [None]
  - PYREXIA [None]
  - RENAL IMPAIRMENT [None]
  - SPLENIC VEIN THROMBOSIS [None]
  - THROMBOTIC THROMBOCYTOPENIC PURPURA [None]
